FAERS Safety Report 10052360 (Version 2)
Quarter: 2014Q2

REPORT INFORMATION
  Report Type: Spontaneous
  Country: US (occurrence: US)
  Receive Date: 20140402
  Receipt Date: 20140425
  Transmission Date: 20141212
  Serious: No
  Sender: FDA-Public Use
  Company Number: US-009507513-1403USA012927

PATIENT
  Age: 21 Year
  Sex: Female
  Weight: 75.28 kg

DRUGS (2)
  1. NEXPLANON [Suspect]
     Indication: CONTRACEPTION
     Dosage: 1 IMPLANT, LEFT ARM
     Route: 059
     Dates: start: 20131118, end: 20140404
  2. NEXPLANON [Suspect]
     Dosage: 1 IMPLANT IN RIGHT ARM
     Route: 059
     Dates: start: 20140404

REACTIONS (4)
  - Keloid scar [Not Recovered/Not Resolved]
  - Implant site erythema [Not Recovered/Not Resolved]
  - Implant site pain [Not Recovered/Not Resolved]
  - Implant site mass [Not Recovered/Not Resolved]
